FAERS Safety Report 7093942-2 (Version None)
Quarter: 2010Q4

REPORT INFORMATION
  Report Type: 
  Country: None (occurrence: None)
  Receive Date: 20101110
  Receipt Date: 20101028
  Transmission Date: 20110411
  Serious: Yes (Death)
  Sender: FDA-Public Use
  Company Number: NL-ACTELION-A-CH2010-40199

PATIENT
  Sex: Female
  Weight: 38 kg

DRUGS (1)
  1. MIGLUSTAT CAPSULE 100 MG EU [Suspect]
     Indication: LIPIDOSIS
     Dosage: 100 MG, BID
     Route: 048
     Dates: start: 20080624

REACTIONS (3)
  - EPILEPSY [None]
  - RESPIRATORY FAILURE [None]
  - RESPIRATORY TRACT INFECTION [None]
